FAERS Safety Report 6213900-7 (Version None)
Quarter: 2009Q2

REPORT INFORMATION
  Report Type: 
  Country: None (occurrence: None)
  Receive Date: 20090602
  Receipt Date: 20090519
  Transmission Date: 20091009
  Serious: Yes (Disabling, Other)
  Sender: FDA-Public Use
  Company Number: DSU-2009-01085

PATIENT
  Sex: Male

DRUGS (3)
  1. BENICAR [Suspect]
     Indication: DRUG USE FOR UNKNOWN INDICATION
     Dosage: 20 MG ( 20 MG, QD); 40 MG (40 MG, QD) , PER ORAL
     Route: 048
     Dates: end: 20090423
  2. BENICAR [Suspect]
     Indication: DRUG USE FOR UNKNOWN INDICATION
     Dosage: 20 MG ( 20 MG, QD); 40 MG (40 MG, QD) , PER ORAL
     Route: 048
     Dates: start: 20050101
  3. DIOVAN [Suspect]
     Indication: DRUG USE FOR UNKNOWN INDICATION
     Dosage: ^LOW'
     Dates: start: 20010101, end: 20050101

REACTIONS (5)
  - HAEMATOCRIT DECREASED [None]
  - PRURITUS [None]
  - RED BLOOD CELL COUNT DECREASED [None]
  - RENAL FUNCTION TEST ABNORMAL [None]
  - RHABDOMYOLYSIS [None]
